FAERS Safety Report 24188275 (Version 1)
Quarter: 2024Q3

REPORT INFORMATION
  Report Type: Spontaneous
  Country: US (occurrence: US)
  Receive Date: 20240808
  Receipt Date: 20240808
  Transmission Date: 20241016
  Serious: No
  Sender: OTSUKA
  Company Number: US-OTSUKA-2023_019891

PATIENT
  Age: 34 Year
  Sex: Female
  Weight: 45.3 kg

DRUGS (2)
  1. ABILIFY [Suspect]
     Active Substance: ARIPIPRAZOLE
     Indication: Product used for unknown indication
     Dosage: 20 MG, AT BEDTIME
     Route: 048
     Dates: start: 202209
  2. ABILIFY [Suspect]
     Active Substance: ARIPIPRAZOLE
     Dosage: UNK (DOSE INCREASED)
     Route: 048

REACTIONS (2)
  - Muscle twitching [Unknown]
  - Tremor [Unknown]
